FAERS Safety Report 24543331 (Version 1)
Quarter: 2024Q4

REPORT INFORMATION
  Report Type: Report from Study
  Country: CA (occurrence: CA)
  Receive Date: 20241024
  Receipt Date: 20241024
  Transmission Date: 20250115
  Serious: Yes (Other)
  Sender: JOHNSON AND JOHNSON
  Company Number: CA-JNJFOC-20240331519

PATIENT
  Age: 50 Year
  Sex: Female

DRUGS (2)
  1. REMICADE [Suspect]
     Active Substance: INFLIXIMAB
     Indication: Colitis ulcerative
     Route: 041
     Dates: start: 20150519
  2. REMICADE [Suspect]
     Active Substance: INFLIXIMAB
     Dosage: LATEST THERAPY DATE; 18-OCT-2024
     Route: 041

REACTIONS (1)
  - Perioral dermatitis [Recovering/Resolving]

NARRATIVE: CASE EVENT DATE: 20240308
